FAERS Safety Report 8841779 (Version 1)
Quarter: 2012Q4

REPORT INFORMATION
  Report Type: 
  Country: BE (occurrence: BE)
  Receive Date: 20121016
  Receipt Date: 20121016
  Transmission Date: 20130627
  Serious: Yes (Hospitalization)
  Sender: FDA-Public Use
  Company Number: BE-MERCK-1207BEL007818

PATIENT
  Age: 53 Year
  Sex: Female

DRUGS (6)
  1. REBETOL [Suspect]
     Indication: HEPATITIS C
     Dosage: 800 mg, bid
     Dates: start: 20120508, end: 20120718
  2. REBETOL [Suspect]
     Dosage: 800 mg, UNK
     Dates: start: 20120728
  3. PEGINTRON [Suspect]
     Indication: HEPATITIS C
     Dosage: 80 Microgram, qw
     Dates: start: 20120508
  4. VICTRELIS [Suspect]
     Indication: HEPATITIS C
     Dosage: 2400 mg, tid
     Dates: start: 20120530
  5. EFEXOR [Concomitant]
  6. NITRAZEPAM [Concomitant]

REACTIONS (5)
  - Anaemia [Not Recovered/Not Resolved]
  - Hypophagia [Unknown]
  - Depression [Not Recovered/Not Resolved]
  - Dehydration [Not Recovered/Not Resolved]
  - Myalgia [Not Recovered/Not Resolved]
